FAERS Safety Report 12266135 (Version 1)
Quarter: 2016Q2

REPORT INFORMATION
  Report Type: Spontaneous
  Country: US (occurrence: US)
  Receive Date: 20160413
  Receipt Date: 20160413
  Transmission Date: 20160815
  Serious: No
  Sender: FDA-Public Use
  Company Number: US-HOSPIRA-2959597

PATIENT
  Age: 4 Year
  Sex: Male
  Weight: 16.36 kg

DRUGS (2)
  1. ALPHANATE [Concomitant]
     Active Substance: HUMAN COAGULATION FACTOR VIII/VON WILLEBRAND FACTOR COMPLEX
     Indication: HAEMOPHILIA
     Route: 050
  2. AMINOCAPROIC ACID. [Suspect]
     Active Substance: AMINOCAPROIC ACID
     Indication: HAEMORRHAGIC DISORDER
     Dosage: Q 6 HR PRN
     Route: 048
     Dates: start: 20140506

REACTIONS (3)
  - No adverse event [None]
  - Incorrect route of drug administration [Recovered/Resolved]
  - Drug dispensing error [Recovered/Resolved]

NARRATIVE: CASE EVENT DATE: 20140506
